FAERS Safety Report 23037558 (Version 5)
Quarter: 2025Q3

REPORT INFORMATION
  Report Type: Spontaneous
  Country: US (occurrence: US)
  Receive Date: 20231006
  Receipt Date: 20250822
  Transmission Date: 20251020
  Serious: Yes (Other)
  Sender: SANOFI AVENTIS
  Company Number: US-SA-SAC20231003001280

PATIENT
  Age: 43 Year
  Sex: Male

DRUGS (6)
  1. DUPIXENT [Suspect]
     Active Substance: DUPILUMAB
     Indication: Eosinophilic oesophagitis
     Dosage: 300 MG, QW
     Route: 058
     Dates: start: 20221216
  2. CETIRIZINE [Concomitant]
     Active Substance: CETIRIZINE HYDROCHLORIDE
  3. FLUOXETINE [Concomitant]
     Active Substance: FLUOXETINE HYDROCHLORIDE
  4. IBUPROFEN [Concomitant]
     Active Substance: IBUPROFEN
  5. ACETAMINOPHEN\HYDROCODONE [Concomitant]
     Active Substance: ACETAMINOPHEN\HYDROCODONE
  6. ZEPBOUND [Concomitant]
     Active Substance: TIRZEPATIDE

REACTIONS (10)
  - Spinal operation [Unknown]
  - COVID-19 [Recovering/Resolving]
  - Impaired quality of life [Unknown]
  - Infection [Unknown]
  - Dysphagia [Recovering/Resolving]
  - Post procedural infection [Unknown]
  - Eye irritation [Not Recovered/Not Resolved]
  - Diarrhoea [Unknown]
  - Eosinophilic oesophagitis [Recovering/Resolving]
  - Drug ineffective [Unknown]

NARRATIVE: CASE EVENT DATE: 20230901
